FAERS Safety Report 11736734 (Version 1)
Quarter: 2015Q4

REPORT INFORMATION
  Report Type: Spontaneous
  Country: US (occurrence: US)
  Receive Date: 20151110
  Receipt Date: 20151110
  Transmission Date: 20160304
  Serious: No
  Sender: FDA-Public Use
  Company Number: US-ELI_LILLY_AND_COMPANY-US201112002171

PATIENT
  Age: 51 Year
  Sex: Female

DRUGS (4)
  1. FORTEO [Suspect]
     Active Substance: TERIPARATIDE
     Dosage: 20 UG, QD
     Route: 065
     Dates: start: 20110913
  2. FORTEO [Suspect]
     Active Substance: TERIPARATIDE
     Dosage: 20 UG, QD
     Dates: end: 201202
  3. FORTEO [Suspect]
     Active Substance: TERIPARATIDE
     Indication: OSTEOPOROSIS
     Dosage: 20 UG, QD
     Route: 065
     Dates: start: 2010
  4. FORTEO [Suspect]
     Active Substance: TERIPARATIDE
     Dosage: 20 UG, QD

REACTIONS (21)
  - Bone pain [Recovered/Resolved]
  - Myalgia [Not Recovered/Not Resolved]
  - Muscle spasms [Unknown]
  - Intentional product misuse [Recovered/Resolved]
  - Vein disorder [Unknown]
  - Palpitations [Unknown]
  - Injection site erythema [Not Recovered/Not Resolved]
  - Limb discomfort [Unknown]
  - Arthralgia [Unknown]
  - Tooth disorder [Unknown]
  - Bone pain [Unknown]
  - Muscle spasms [Not Recovered/Not Resolved]
  - Muscular weakness [Unknown]
  - Malaise [Unknown]
  - Bone pain [Unknown]
  - Myalgia [Recovered/Resolved]
  - Drug dose omission [Unknown]
  - Musculoskeletal stiffness [Unknown]
  - Injection site bruising [Unknown]
  - Injection site pain [Unknown]
  - Pain in extremity [Unknown]

NARRATIVE: CASE EVENT DATE: 2010
